FAERS Safety Report 4940461-2 (Version None)
Quarter: 2006Q1

REPORT INFORMATION
  Report Type: 
  Country: None (occurrence: None)
  Receive Date: 20060131
  Receipt Date: 20051222
  Transmission Date: 20060701
  Serious: Yes (Other)
  Sender: FDA-Public Use
  Company Number: 200520794US

PATIENT
  Age: 26 Year
  Sex: Female

DRUGS (4)
  1. KETEK [Suspect]
     Indication: COUGH
     Dosage: 800 MG
     Dates: start: 20051216, end: 20051216
  2. KETEK [Suspect]
     Indication: PHARYNGOLARYNGEAL PAIN
     Dosage: 800 MG
     Dates: start: 20051216, end: 20051216
  3. BISOPROLOL FUMARATE (ZEBETA) [Concomitant]
  4. TOPIRAMATE [Concomitant]

REACTIONS (3)
  - CHEST PAIN [None]
  - HYPERHIDROSIS [None]
  - SYNCOPE [None]
